FAERS Safety Report 7703314-2 (Version None)
Quarter: 2011Q3

REPORT INFORMATION
  Report Type: 
  Country: None (occurrence: None)
  Receive Date: 20110823
  Receipt Date: 20110810
  Transmission Date: 20111222
  Serious: Yes (Hospitalization, Other)
  Sender: FDA-Public Use
  Company Number: US-ELI_LILLY_AND_COMPANY-US201108003828

PATIENT
  Age: 69 Year
  Sex: Male

DRUGS (8)
  1. NEXIUM [Concomitant]
  2. CYMBALTA [Suspect]
     Indication: NEURALGIA
     Dosage: 60 MG, UNK
  3. TELMISARTAN [Concomitant]
  4. MELOXICAM [Concomitant]
  5. VERAPAMIL [Concomitant]
  6. ASPIRIN [Concomitant]
  7. METHADONE HYDROCHLORIDE [Concomitant]
  8. LYRICA [Concomitant]

REACTIONS (4)
  - PNEUMONIA ASPIRATION [None]
  - THROAT CANCER [None]
  - WRONG TECHNIQUE IN DRUG USAGE PROCESS [None]
  - OFF LABEL USE [None]
